FAERS Safety Report 13781867 (Version 2)
Quarter: 2017Q3

REPORT INFORMATION
  Report Type: Spontaneous
  Country: FR (occurrence: FR)
  Receive Date: 20170724
  Receipt Date: 20170907
  Transmission Date: 20171127
  Serious: Yes (Hospitalization, Other)
  Sender: FDA-Public Use
  Company Number: FR-009507513-1707FRA008398

PATIENT
  Age: 59 Year
  Sex: Female
  Weight: 51 kg

DRUGS (1)
  1. ISENTRESS [Suspect]
     Active Substance: RALTEGRAVIR POTASSIUM
     Indication: HIV INFECTION
     Dosage: 400MG ,1 DF, TWICE DAILY
     Route: 048

REACTIONS (5)
  - Respiratory distress [Unknown]
  - General physical health deterioration [Unknown]
  - Acute respiratory failure [Unknown]
  - Lung disorder [Unknown]
  - Haemodynamic test abnormal [Unknown]

NARRATIVE: CASE EVENT DATE: 2017
